FAERS Safety Report 9061992 (Version 2)
Quarter: 2013Q2

REPORT INFORMATION
  Report Type: Spontaneous
  Country: US (occurrence: US)
  Receive Date: 20130204
  Receipt Date: 20130403
  Transmission Date: 20140414
  Serious: Yes (Other)
  Sender: FDA-Public Use
  Company Number: US-ELI_LILLY_AND_COMPANY-US201301008953

PATIENT
  Age: 40 Year
  Sex: Male

DRUGS (2)
  1. CYMBALTA [Suspect]
     Indication: MAJOR DEPRESSION
     Dosage: 30 MG, UNKNOWN
  2. WELCHOL [Concomitant]
     Dosage: UNK, UNKNOWN

REACTIONS (1)
  - Alcohol abuse [Unknown]
